FAERS Safety Report 8168340-0 (Version None)
Quarter: 2012Q1

REPORT INFORMATION
  Report Type: 
  Country: None (occurrence: None)
  Receive Date: 20120227
  Receipt Date: 20120221
  Transmission Date: 20120608
  Serious: Yes (Hospitalization, Other)
  Sender: FDA-Public Use
  Company Number: US-MERCK-1101USA00246

PATIENT
  Age: 53 Year
  Sex: Female
  Weight: 57 kg

DRUGS (4)
  1. FOSAMAX [Suspect]
     Route: 048
  2. BONIVA [Suspect]
     Route: 065
     Dates: start: 20060101, end: 20080101
  3. FOSAMAX [Suspect]
     Route: 048
     Dates: start: 20030101, end: 20090201
  4. ALENDRONATE SODIUM [Suspect]
     Route: 048
     Dates: start: 20080101, end: 20090201

REACTIONS (24)
  - AORTIC ARTERIOSCLEROSIS [None]
  - LOW TURNOVER OSTEOPATHY [None]
  - COUGH [None]
  - PATHOLOGICAL FRACTURE [None]
  - MUSCULOSKELETAL PAIN [None]
  - PULMONARY CONGESTION [None]
  - NEUROPATHY PERIPHERAL [None]
  - FEMUR FRACTURE [None]
  - OVERDOSE [None]
  - ORAL DISORDER [None]
  - HYPERTENSION [None]
  - FALL [None]
  - HYSTERECTOMY [None]
  - ARTHRITIS [None]
  - OSTEOPOROSIS [None]
  - BLOOD POTASSIUM DECREASED [None]
  - BUNION [None]
  - OSTEOGENESIS IMPERFECTA [None]
  - ANAEMIA [None]
  - ASTHMA [None]
  - BENIGN BREAST NEOPLASM [None]
  - HYPOTHYROIDISM [None]
  - OSTEOPENIA [None]
  - ROTATOR CUFF SYNDROME [None]
